FAERS Safety Report 24160473 (Version 1)
Quarter: 2024Q3

REPORT INFORMATION
  Report Type: Report from Study
  Country: US (occurrence: US)
  Receive Date: 20240801
  Receipt Date: 20240801
  Transmission Date: 20241017
  Serious: Yes (Other)
  Sender: ABBVIE
  Company Number: US-ABBVIE-5740977

PATIENT
  Age: 40 Year
  Sex: Female

DRUGS (1)
  1. HUMIRA [Suspect]
     Active Substance: ADALIMUMAB
     Indication: Ankylosing spondylitis
     Dosage: CITRATE FREE
     Route: 058
     Dates: start: 20210618

REACTIONS (4)
  - Foreign body in mouth [Recovering/Resolving]
  - Osteitis [Not Recovered/Not Resolved]
  - Neck pain [Recovered/Resolved]
  - Gingival pain [Unknown]

NARRATIVE: CASE EVENT DATE: 20240714
